FAERS Safety Report 23750234 (Version 1)
Quarter: 2024Q2

REPORT INFORMATION
  Report Type: Spontaneous
  Country: US (occurrence: US)
  Receive Date: 20240417
  Receipt Date: 20240417
  Transmission Date: 20240716
  Serious: Yes (Other)
  Sender: FDA-Public Use
  Company Number: US-BEH-2024170799

PATIENT
  Sex: Female

DRUGS (1)
  1. HIZENTRA [Suspect]
     Active Substance: HUMAN IMMUNOGLOBULIN G
     Indication: Chronic inflammatory demyelinating polyradiculoneuropathy
     Dosage: 36 G, QW
     Route: 058
     Dates: start: 202306

REACTIONS (4)
  - Unresponsive to stimuli [Unknown]
  - Vomiting [Unknown]
  - Alcohol use [Unknown]
  - Aggression [Unknown]
